FAERS Safety Report 6424058-3 (Version None)
Quarter: 2009Q4

REPORT INFORMATION
  Report Type: 
  Country: None (occurrence: None)
  Receive Date: 20091029
  Receipt Date: 20091014
  Transmission Date: 20100525
  Serious: Yes (Death, Hospitalization)
  Sender: FDA-Public Use
  Company Number: 2009003166

PATIENT
  Age: 78 Year
  Sex: Female

DRUGS (5)
  1. ERLOTINIB HYDROCHLORIDE [Suspect]
     Indication: ADENOCARCINOMA PANCREAS
     Dosage: ORAL
     Route: 048
     Dates: start: 20090402, end: 20090916
  2. CAPECITABINE [Suspect]
     Dosage: (1600 MG/M2)
     Dates: start: 20090402, end: 20090916
  3. GEMCITABINE [Suspect]
     Dosage: (1000 MG/M2), INTRAVENOUS
     Route: 042
     Dates: start: 20090402, end: 20090916
  4. LOPERAMIDE HYDROCHLORIDE [Concomitant]
  5. PRIMPERAN TAB [Concomitant]

REACTIONS (2)
  - DIARRHOEA [None]
  - FEBRILE BONE MARROW APLASIA [None]
